FAERS Safety Report 21389813 (Version 1)
Quarter: 2022Q3

REPORT INFORMATION
  Report Type: Spontaneous
  Country: DK (occurrence: None)
  Receive Date: 20220929
  Receipt Date: 20220929
  Transmission Date: 20221027
  Serious: Yes (Other)
  Sender: FDA-Public Use
  Company Number: DK-Allegis Pharmaceuticals, LLC-APL202209-000071

PATIENT
  Age: 40 Year
  Sex: Female

DRUGS (1)
  1. NITROGLYCERIN [Suspect]
     Active Substance: NITROGLYCERIN
     Indication: Angina pectoris
     Dates: start: 20181128

REACTIONS (10)
  - Photophobia [Unknown]
  - Motion sickness [Not Recovered/Not Resolved]
  - Malaise [Unknown]
  - Fatigue [Not Recovered/Not Resolved]
  - Sluggishness [Unknown]
  - Syncope [Unknown]
  - Hypertension [Not Recovered/Not Resolved]
  - Hyperacusis [Unknown]
  - Dizziness [Not Recovered/Not Resolved]
  - Headache [Not Recovered/Not Resolved]

NARRATIVE: CASE EVENT DATE: 20181101
